FAERS Safety Report 25099016 (Version 1)
Quarter: 2025Q1

REPORT INFORMATION
  Report Type: Spontaneous
  Country: US (occurrence: US)
  Receive Date: 20250320
  Receipt Date: 20250320
  Transmission Date: 20250408
  Serious: Yes (Life-Threatening, Hospitalization)
  Sender: MYLAN
  Company Number: US-MYLANLABS-2025M1021380

PATIENT
  Age: 40 Year
  Sex: Male

DRUGS (1)
  1. METHIMAZOLE [Suspect]
     Active Substance: METHIMAZOLE
     Indication: Graves^ disease

REACTIONS (9)
  - Intentional product misuse [Recovered/Resolved]
  - Rebound effect [Recovered/Resolved]
  - Thyrotoxic crisis [Recovered/Resolved]
  - Cardiogenic shock [Recovering/Resolving]
  - Atrial fibrillation [Recovering/Resolving]
  - Respiratory distress [Recovering/Resolving]
  - Renal failure [Recovering/Resolving]
  - Haemodynamic instability [Recovering/Resolving]
  - Mental status changes [Recovering/Resolving]
